FAERS Safety Report 7608375-7 (Version None)
Quarter: 2011Q3

REPORT INFORMATION
  Report Type: 
  Country: None (occurrence: None)
  Receive Date: 20110714
  Receipt Date: 20110531
  Transmission Date: 20111222
  Serious: No
  Sender: FDA-Public Use
  Company Number: US-TYCO HEALTHCARE/MALLINCKRODT-T201101168

PATIENT
  Sex: Female
  Weight: 58.957 kg

DRUGS (1)
  1. MORPHINE [Suspect]
     Indication: PAIN
     Dosage: 160 MG, TID
     Dates: start: 20070401, end: 20080401

REACTIONS (9)
  - TINNITUS [None]
  - WITHDRAWAL SYNDROME [None]
  - FLUSHING [None]
  - CONSTIPATION [None]
  - BREAST SWELLING [None]
  - FORMICATION [None]
  - INTELLIGENCE TEST ABNORMAL [None]
  - BREAST TENDERNESS [None]
  - FEELING ABNORMAL [None]
